FAERS Safety Report 4434176-7 (Version None)
Quarter: 2004Q3

REPORT INFORMATION
  Report Type: 
  Country: None (occurrence: None)
  Receive Date: 20040825
  Receipt Date: 20040810
  Transmission Date: 20050211
  Serious: Yes (Hospitalization)
  Sender: FDA-Public Use
  Company Number: 04P-056-0270230-00

PATIENT
  Age: 30 Year
  Sex: Female

DRUGS (4)
  1. AKINETON [Suspect]
     Dosage: 1, 1/2 IN 1 DAY, PER ORAL
     Route: 048
     Dates: start: 20040415
  2. CHLORPROMAZINE HCL [Suspect]
     Dosage: 50 MG, 1 IN 1 D, PER ORAL
     Route: 048
     Dates: start: 20040415
  3. PRAZEPAM [Suspect]
     Dosage: 10 MG, 1 IN 1 D, PER ORAL
     Route: 048
     Dates: start: 20040415
  4. HEPTAMINOL [Concomitant]

REACTIONS (6)
  - DIPLOPIA [None]
  - DYSMENORRHOEA [None]
  - HYPERPROLACTINAEMIA [None]
  - MALAISE [None]
  - PARESIS [None]
  - SLEEP ATTACKS [None]
